FAERS Safety Report 18042747 (Version 1)
Quarter: 2020Q3

REPORT INFORMATION
  Report Type: Spontaneous
  Country: US (occurrence: US)
  Receive Date: 20200714
  Receipt Date: 20200714
  Transmission Date: 20201103
  Serious: Yes (Death)
  Sender: FDA-Public Use
  Company Number: None

PATIENT
  Age: 76 Year
  Sex: Female
  Weight: 70.31 kg

DRUGS (1)
  1. DIRECT INTRAVENOUS OZONE?OXYGEN GAS [Suspect]
     Active Substance: OXYGEN\OZONE
     Indication: PRODUCT USED FOR UNKNOWN INDICATION
     Dates: start: 20181206, end: 20190925

REACTIONS (3)
  - Incorrect route of product administration [None]
  - Unresponsive to stimuli [None]
  - Respiratory distress [None]

NARRATIVE: CASE EVENT DATE: 20190925
